FAERS Safety Report 12606806 (Version 6)
Quarter: 2019Q1

REPORT INFORMATION
  Report Type: Report from Study
  Country: JP (occurrence: JP)
  Receive Date: 20160729
  Receipt Date: 20190329
  Transmission Date: 20190417
  Serious: Yes (Other)
  Sender: FDA-Public Use
  Company Number: JP-OTSUKA-2016_011844AA

PATIENT
  Age: 45 Year
  Sex: Female
  Weight: 70 kg

DRUGS (8)
  1. TOLVAPTAN [Suspect]
     Active Substance: TOLVAPTAN
     Dosage: 30 MG, DAILY DOSE (DIVIDED 2 DOSES)
     Route: 048
     Dates: start: 20150310, end: 20150422
  2. TOLVAPTAN [Suspect]
     Active Substance: TOLVAPTAN
     Dosage: 30 MG, DAILY DOSE (DIVIDED 2 DOSES)
     Route: 048
     Dates: start: 20160115, end: 20160215
  3. TOLVAPTAN [Suspect]
     Active Substance: TOLVAPTAN
     Dosage: 30 MG, DAILY DOSE (DIVIDED 2 DOSES)
     Route: 048
     Dates: start: 20180207
  4. TOLVAPTAN [Suspect]
     Active Substance: TOLVAPTAN
     Indication: CONGENITAL CYSTIC KIDNEY DISEASE
     Dosage: 90 MG, DAILY DOSE (DIVIDED 2 DOSES)
     Route: 048
     Dates: start: 20150522, end: 20150715
  5. TOLVAPTAN [Suspect]
     Active Substance: TOLVAPTAN
     Dosage: 60 MG, DAILY DOSE (DIVIDED 2 DOSES)
     Route: 048
     Dates: start: 20150716, end: 20150730
  6. NU-LOTAN [Concomitant]
     Active Substance: LOSARTAN POTASSIUM
     Indication: PRODUCT USED FOR UNKNOWN INDICATION
     Dosage: 25 MG, QD
     Route: 048
  7. TOLVAPTAN [Suspect]
     Active Substance: TOLVAPTAN
     Dosage: 60 MG, DAILY DOSE (DIVIDED 2 DOSES)
     Route: 048
     Dates: start: 20150423, end: 20150521
  8. TOLVAPTAN [Suspect]
     Active Substance: TOLVAPTAN
     Dosage: 22.5 MG, DAILY DOSE (DIVIDED 2 DOSES)
     Route: 048
     Dates: start: 20170605, end: 20180206

REACTIONS (2)
  - Liver disorder [Recovered/Resolved]
  - Liver disorder [Recovered/Resolved]

NARRATIVE: CASE EVENT DATE: 20150618
